FAERS Safety Report 4504951-9 (Version None)
Quarter: 2004Q4

REPORT INFORMATION
  Report Type: 
  Country: None (occurrence: None)
  Receive Date: 20041119
  Receipt Date: 20041008
  Transmission Date: 20050328
  Serious: Yes (Other)
  Sender: FDA-Public Use
  Company Number: JP-JNJFOC-20040807196

PATIENT
  Age: 66 Year
  Sex: Female

DRUGS (12)
  1. REMICADE [Suspect]
     Route: 042
  2. REMICADE [Suspect]
     Indication: RHEUMATOID ARTHRITIS
     Route: 042
  3. METHOTREXATE [Concomitant]
  4. ISONIAZID [Concomitant]
  5. ACTARIT [Concomitant]
  6. CALCITRIOL [Concomitant]
  7. ITRACONAZOLE [Concomitant]
  8. PREDNISOLONE [Concomitant]
  9. PYRIDOXAL PHOSPHATE [Concomitant]
  10. REBAMIPIDE [Concomitant]
  11. SULFASALAZINE [Concomitant]
  12. TOCOPHEROL CONCENTRATE CAP [Concomitant]

REACTIONS (1)
  - PNEUMONITIS CRYPTOCOCCAL [None]
